FAERS Safety Report 12201840 (Version 1)
Quarter: 2016Q1

REPORT INFORMATION
  Report Type: Spontaneous
  Country: US (occurrence: US)
  Receive Date: 20160322
  Receipt Date: 20160322
  Transmission Date: 20160526
  Serious: Yes (Other)
  Sender: FDA-Public Use
  Company Number: US-SMITH AND NEPHEW, INC-2016SMT00217

PATIENT
  Age: 83 Year
  Sex: Female

DRUGS (2)
  1. REGRANEX [Suspect]
     Active Substance: BECAPLERMIN
     Indication: VASCULITIC ULCER
     Dosage: UNK, 1X/DAY
     Dates: start: 20160204, end: 20160206
  2. LIQUACEL [Concomitant]
     Dosage: 1 OZ, 1X/DAY
     Dates: start: 20160204, end: 20160206

REACTIONS (2)
  - Wound infection staphylococcal [Recovered/Resolved]
  - Hypersensitivity [Unknown]

NARRATIVE: CASE EVENT DATE: 20160208
